FAERS Safety Report 20033362 (Version 1)
Quarter: 2021Q4

REPORT INFORMATION
  Report Type: Spontaneous
  Country: US (occurrence: US)
  Receive Date: 20211104
  Receipt Date: 20211104
  Transmission Date: 20220303
  Serious: Yes (Death)
  Sender: FDA-Public Use
  Company Number: US-CELGENE-USA-20211100581

PATIENT
  Age: 60 Year
  Sex: Female
  Weight: 48.8 kg

DRUGS (1)
  1. ABECMA [Suspect]
     Active Substance: IDECABTAGENE VICLEUCEL
     Indication: Plasma cell myeloma
     Route: 041
     Dates: start: 20210824, end: 20210824

REACTIONS (1)
  - Plasma cell myeloma recurrent [Fatal]

NARRATIVE: CASE EVENT DATE: 20211008
